FAERS Safety Report 16421409 (Version 1)
Quarter: 2019Q2

REPORT INFORMATION
  Report Type: Report from Study
  Country: US (occurrence: US)
  Receive Date: 20190612
  Receipt Date: 20190612
  Transmission Date: 20190711
  Serious: Yes (Death, Other)
  Sender: FDA-Public Use
  Company Number: US-JNJFOC-20190528233

PATIENT
  Age: 78 Year
  Sex: Female

DRUGS (8)
  1. IMBRUVICA [Suspect]
     Active Substance: IBRUTINIB
     Indication: LYMPHOCYTIC LEUKAEMIA
     Route: 048
     Dates: start: 201811
  2. ALLOPURINOL. [Concomitant]
     Active Substance: ALLOPURINOL
  3. VITAMIN D3 [Concomitant]
     Active Substance: CHOLECALCIFEROL
  4. ASPIRIN. [Suspect]
     Active Substance: ASPIRIN
     Indication: PRODUCT USED FOR UNKNOWN INDICATION
     Route: 065
  5. FLAXSEED [Concomitant]
     Active Substance: FLAX SEED
  6. VITAMIN B [Concomitant]
     Active Substance: VITAMIN B
  7. LATANOPROST. [Concomitant]
     Active Substance: LATANOPROST
  8. LOVASTATIN. [Concomitant]
     Active Substance: LOVASTATIN

REACTIONS (1)
  - Subdural haemorrhage [Fatal]

NARRATIVE: CASE EVENT DATE: 20190322
